FAERS Safety Report 7572791-2 (Version None)
Quarter: 2011Q2

REPORT INFORMATION
  Report Type: 
  Country: None (occurrence: None)
  Receive Date: 20110627
  Receipt Date: 20110623
  Transmission Date: 20111010
  Serious: No
  Sender: FDA-Public Use
  Company Number: US-PFIZER INC-2011139853

PATIENT
  Sex: Female
  Weight: 113 kg

DRUGS (6)
  1. CHANTIX [Suspect]
     Indication: SMOKING CESSATION THERAPY
     Dosage: 0.5 MG, DAILY
     Route: 048
     Dates: start: 20110606, end: 20110601
  2. CHANTIX [Suspect]
     Dosage: 1 MG, 2X/DAY
     Route: 048
     Dates: start: 20110601
  3. SYNTHROID [Concomitant]
     Dosage: 175 UG, DAILY
     Route: 048
  4. PREVACID [Concomitant]
     Dosage: 20 MG, DAILY
     Route: 048
  5. ATENOLOL [Concomitant]
     Dosage: 25 MG, DAILY
  6. HYDROCHLOROTHIAZIDE [Concomitant]
     Dosage: 25 MG, DAILY

REACTIONS (1)
  - HEADACHE [None]
